FAERS Safety Report 8591640-7 (Version None)
Quarter: 2012Q3

REPORT INFORMATION
  Report Type: 
  Country: None (occurrence: None)
  Receive Date: 20120814
  Receipt Date: 20120806
  Transmission Date: 20120928
  Serious: Yes (Other)
  Sender: FDA-Public Use
  Company Number: FI-JNJFOC-20120803558

PATIENT
  Age: 93 Year
  Sex: Female

DRUGS (6)
  1. AMILORIDE HCL AND HYDROCHLOROTHIAZIDE [Concomitant]
     Indication: CARDIAC FAILURE
     Route: 065
  2. DURAGESIC-100 [Suspect]
     Indication: PAIN
     Route: 062
  3. MIRTAZAPINE [Concomitant]
     Indication: DEPRESSION
     Route: 065
  4. ENALAPRIL MALEATE [Concomitant]
     Route: 065
  5. FEMARA [Concomitant]
     Indication: BREAST CANCER
     Route: 065
  6. DIFORMIN RETARD [Concomitant]
     Indication: DIABETES MELLITUS
     Route: 065

REACTIONS (5)
  - BACK PAIN [None]
  - HYPERHIDROSIS [None]
  - PRODUCT QUALITY ISSUE [None]
  - FALL [None]
  - PAIN IN EXTREMITY [None]
